FAERS Safety Report 23508594 (Version 1)
Quarter: 2024Q1

REPORT INFORMATION
  Report Type: Spontaneous
  Country: CH (occurrence: CH)
  Receive Date: 20240209
  Receipt Date: 20240209
  Transmission Date: 20240410
  Serious: Yes (Hospitalization, Other)
  Sender: FDA-Public Use
  Company Number: CH-SA-SAC20240208000223

PATIENT
  Age: 52 Year
  Sex: Male

DRUGS (2)
  1. DUPIXENT [Suspect]
     Active Substance: DUPILUMAB
     Indication: Dermatitis atopic
     Dosage: UNK UNK, QOW
     Route: 065
  2. DUPIXENT [Suspect]
     Active Substance: DUPILUMAB
     Dosage: UNK UNK, Q4W

REACTIONS (5)
  - Dermatitis exfoliative generalised [Unknown]
  - Blood immunoglobulin E increased [Unknown]
  - Condition aggravated [Unknown]
  - Hypertension [Unknown]
  - Inappropriate schedule of product administration [Unknown]
